FAERS Safety Report 10207023 (Version 1)
Quarter: 2014Q2

REPORT INFORMATION
  Report Type: Spontaneous
  Country: US (occurrence: US)
  Receive Date: 20140530
  Receipt Date: 20140530
  Transmission Date: 20141212
  Serious: Yes (Life-Threatening, Hospitalization, Disabling)
  Sender: FDA-Public Use
  Company Number: US-SA-2014SA065978

PATIENT
  Age: 51 Year
  Sex: Male

DRUGS (1)
  1. LANTUS SOLOSTAR [Suspect]
     Indication: TYPE 1 DIABETES MELLITUS
     Dosage: DOSE:35 UNIT(S)
     Route: 065
     Dates: start: 2007

REACTIONS (5)
  - Carbon dioxide increased [Unknown]
  - Syncope [Unknown]
  - Renal transplant [Unknown]
  - Tracheostomy [Unknown]
  - Drug administration error [Unknown]
